FAERS Safety Report 7939505-5 (Version None)
Quarter: 2011Q4

REPORT INFORMATION
  Report Type: 
  Country: None (occurrence: None)
  Receive Date: 20111125
  Receipt Date: 20111115
  Transmission Date: 20120403
  Serious: Yes (Hospitalization)
  Sender: FDA-Public Use
  Company Number: US-AMGEN-USASP2011046526

PATIENT
  Age: 37 Year
  Sex: Female

DRUGS (3)
  1. ENBREL [Suspect]
     Indication: PSORIASIS
     Dosage: 50 MG, QWK
     Route: 058
     Dates: start: 20090330, end: 20101001
  2. ENBREL [Suspect]
     Dosage: 50 MG, QMO
     Dates: start: 20030101
  3. ENBREL [Suspect]
     Dosage: 50 MG, QWK
     Route: 058
     Dates: start: 20070101, end: 20080812

REACTIONS (3)
  - INJECTION SITE ERYTHEMA [None]
  - LIP AND/OR ORAL CAVITY CANCER [None]
  - INJECTION SITE SWELLING [None]
